FAERS Safety Report 15411588 (Version 2)
Quarter: 2018Q4

REPORT INFORMATION
  Report Type: Report from Study
  Country: None (occurrence: US)
  Receive Date: 20180921
  Receipt Date: 20181029
  Transmission Date: 20190204
  Serious: Yes (Hospitalization)
  Sender: FDA-Public Use
  Company Number: US-ABBVIE-18K-163-2487771-00

PATIENT
  Age: 46 Year
  Sex: Female
  Weight: 74.91 kg

DRUGS (3)
  1. FOLIC ACID. [Concomitant]
     Active Substance: FOLIC ACID
     Indication: RHEUMATOID ARTHRITIS
  2. HUMIRA [Suspect]
     Active Substance: ADALIMUMAB
     Indication: RHEUMATOID ARTHRITIS
     Route: 058
     Dates: start: 2016
  3. METHOTREXATE. [Concomitant]
     Active Substance: METHOTREXATE
     Indication: RHEUMATOID ARTHRITIS

REACTIONS (7)
  - Menstruation irregular [Recovered/Resolved]
  - Injection site haemorrhage [Unknown]
  - Menorrhagia [Recovered/Resolved]
  - Rheumatoid arthritis [Not Recovered/Not Resolved]
  - Polyp [Recovered/Resolved]
  - Injection site bruising [Recovered/Resolved]
  - Ocular hyperaemia [Not Recovered/Not Resolved]

NARRATIVE: CASE EVENT DATE: 2017
